FAERS Safety Report 9491880 (Version 1)
Quarter: 2013Q3

REPORT INFORMATION
  Report Type: Not Available
  Country: US (occurrence: US)
  Receive Date: 20130919
  Receipt Date: 20130919
  Transmission Date: 20140515
  Serious: Yes (Hospitalization)
  Sender: FDA-Public Use
  Company Number: US-LUNDBECK-DKLU1084050

PATIENT
  Age: 19 Year
  Sex: Female

DRUGS (2)
  1. SABRIL (FOR ORAL SOLUTION) [Suspect]
     Indication: COMPLEX PARTIAL SEIZURES
     Dates: start: 20120801
  2. SABRIL (FOR ORAL SOLUTION) [Suspect]
     Dosage: TITRATION SCHEDULE  BY INCREASING DOSAGE BY 500 MG EVERY WEEK UNTIL 3000 MG DAILY

REACTIONS (2)
  - Viral infection [Unknown]
  - Urinary tract infection [Unknown]
